FAERS Safety Report 16707022 (Version 1)
Quarter: 2019Q3

REPORT INFORMATION
  Report Type: Spontaneous
  Country: US (occurrence: US)
  Receive Date: 20190815
  Receipt Date: 20190815
  Transmission Date: 20191004
  Serious: No
  Sender: FDA-Public Use
  Company Number: US-THERAPEUTICSMD-2019TMD00884

PATIENT
  Age: 57 Year
  Sex: Female
  Weight: 58.05 kg

DRUGS (3)
  1. VITAMIN D [Concomitant]
     Active Substance: VITAMIN D NOS
     Dosage: UNK, 1X/DAY
  2. BIJUVA [Suspect]
     Active Substance: ESTRADIOL\PROGESTERONE
     Indication: MENOPAUSE
     Dosage: 1 CAPSULES, 1X/DAY AT NIGHT
     Route: 048
     Dates: start: 201904, end: 201904
  3. MULTIVITAMIN [Concomitant]
     Active Substance: VITAMINS
     Dosage: UNK, 1X/DAY

REACTIONS (3)
  - Urticaria [Recovered/Resolved]
  - Middle insomnia [Recovered/Resolved]
  - Off label use [Recovered/Resolved]

NARRATIVE: CASE EVENT DATE: 201904
